FAERS Safety Report 4837547-X (Version None)
Quarter: 2005Q4

REPORT INFORMATION
  Report Type: 
  Country: None (occurrence: None)
  Receive Date: 20051123
  Receipt Date: 20051123
  Transmission Date: 20060501
  Serious: Yes (Hospitalization)
  Sender: FDA-Public Use
  Company Number: None

PATIENT
  Age: 82 Year
  Sex: Male
  Weight: 82.4 kg

DRUGS (16)
  1. DIGOXIN [Suspect]
     Indication: CARDIAC FAILURE CONGESTIVE
     Dosage: 0.25MG, 0.25MG Q, ORAL
     Route: 048
  2. ASPIRIN [Concomitant]
  3. DOCUSATE [Concomitant]
  4. LISINOPRIL [Concomitant]
  5. ATENOLOL [Concomitant]
  6. IRBESARTAN [Concomitant]
  7. CALCIUM / VITAMIN D [Concomitant]
  8. CELECOXIB [Concomitant]
  9. BRIMONIDINE TARTRATE [Concomitant]
  10. FUROSEMIDE [Concomitant]
  11. HUMULIN N [Concomitant]
  12. FELODIPINE [Concomitant]
  13. CODEINE PHOSPHATE AND ACETAMINOPHEN [Concomitant]
  14. CYCLOBENZAPRINE HCL [Concomitant]
  15. LACTULOSE [Concomitant]
  16. CAPSAICIN [Concomitant]

REACTIONS (1)
  - THERAPEUTIC AGENT TOXICITY [None]
